FAERS Safety Report 25705956 (Version 1)
Quarter: 2025Q3

REPORT INFORMATION
  Report Type: Spontaneous
  Country: EU (occurrence: EU)
  Receive Date: 20250820
  Receipt Date: 20250820
  Transmission Date: 20251021
  Serious: Yes (Other)
  Sender: LEADING PHARMA
  Company Number: EU-LEADINGPHARMA-IT-2025LEALIT00151

PATIENT
  Age: 70 Year
  Sex: Female

DRUGS (1)
  1. HYDROXYUREA [Suspect]
     Active Substance: HYDROXYUREA
     Indication: Polycythaemia vera
     Route: 065
     Dates: start: 2011

REACTIONS (4)
  - Dysplasia [Recovered/Resolved]
  - Drug eruption [Recovered/Resolved]
  - Dermatomyositis [Recovered/Resolved]
  - Product use in unapproved indication [Unknown]
